FAERS Safety Report 24675641 (Version 1)
Quarter: 2024Q4

REPORT INFORMATION
  Report Type: Spontaneous
  Country: US (occurrence: US)
  Receive Date: 20241128
  Receipt Date: 20241128
  Transmission Date: 20250114
  Serious: Yes (Other)
  Sender: MARINUS PHARMACEUTICALS
  Company Number: US-MARINUS PHARMACEUTICALS, INC.-MAR2024000239

PATIENT

DRUGS (1)
  1. ZTALMY [Suspect]
     Active Substance: GANAXOLONE
     Indication: Product used for unknown indication
     Dosage: 10ML IN THE AM AND AFTERNOON, 18ML IN THE PM DAILY
     Route: 048

REACTIONS (3)
  - Seizure [Unknown]
  - Product dose omission issue [Unknown]
  - Vomiting [Unknown]
